FAERS Safety Report 5698114-1 (Version None)
Quarter: 2008Q2

REPORT INFORMATION
  Report Type: 
  Country: None (occurrence: None)
  Receive Date: 20080403
  Receipt Date: 20080321
  Transmission Date: 20081010
  Serious: Yes (Death, Life-Threatening, Disabling)
  Sender: FDA-Public Use
  Company Number: 000335

PATIENT
  Age: 10 Year
  Sex: Male

DRUGS (1)
  1. BUSULFEX [Suspect]
     Indication: STEM CELL TRANSPLANT
     Dosage: 8 ML,  INTRAVENOUS
     Route: 042
     Dates: start: 20070416, end: 20070421

REACTIONS (5)
  - CORD BLOOD TRANSPLANT THERAPY [None]
  - MALAISE [None]
  - MULTI-ORGAN FAILURE [None]
  - STOMATITIS [None]
  - VENOOCCLUSIVE LIVER DISEASE [None]
